FAERS Safety Report 17096845 (Version 1)
Quarter: 2019Q4

REPORT INFORMATION
  Report Type: Spontaneous
  Country: CA (occurrence: CA)
  Receive Date: 20191202
  Receipt Date: 20191202
  Transmission Date: 20200122
  Serious: Yes (Other)
  Sender: FDA-Public Use
  Company Number: CA-ROCHE-2480308

PATIENT
  Age: 37 Year
  Sex: Male

DRUGS (1)
  1. OCREVUS [Suspect]
     Active Substance: OCRELIZUMAB
     Indication: PRODUCT USED FOR UNKNOWN INDICATION
     Dosage: SINGLE-USE VIAL
     Route: 042

REACTIONS (4)
  - Dyspnoea [Unknown]
  - Lower respiratory tract infection [Unknown]
  - Chest discomfort [Unknown]
  - Lyme disease [Unknown]
